FAERS Safety Report 14614590 (Version 1)
Quarter: 2018Q1

REPORT INFORMATION
  Report Type: Spontaneous
  Country: US (occurrence: US)
  Receive Date: 20180308
  Receipt Date: 20180308
  Transmission Date: 20180509
  Serious: No
  Sender: FDA-Public Use
  Company Number: US-PERRIGO-17US030009

PATIENT
  Age: 65 Year
  Sex: Female
  Weight: 57.14 kg

DRUGS (1)
  1. NICOTINE POLACRILEX [Suspect]
     Active Substance: NICOTINE
     Indication: SMOKING CESSATION THERAPY
     Dosage: 1/8 LOZENGE, UP TO 4 TIMES PER DAY
     Route: 002
     Dates: start: 201710, end: 20171114

REACTIONS (2)
  - Wrong technique in product usage process [Recovered/Resolved]
  - Expired product administered [Recovered/Resolved]

NARRATIVE: CASE EVENT DATE: 201710
